FAERS Safety Report 5326915-8 (Version None)
Quarter: 2007Q2

REPORT INFORMATION
  Report Type: 
  Country: None (occurrence: None)
  Receive Date: 20070510
  Receipt Date: 20070425
  Transmission Date: 20071010
  Serious: Yes (Hospitalization)
  Sender: FDA-Public Use
  Company Number: WAES 0705USA00557

PATIENT
  Age: 62 Year
  Sex: Male
  Weight: 69.4003 kg

DRUGS (3)
  1. DECADRON [Suspect]
     Dosage: UNK/UNK/PO
     Route: 048
  2. HYCAMTIN [Concomitant]
  3. [THERAPY UNSPECIFIED] [Concomitant]

REACTIONS (9)
  - ADRENAL INSUFFICIENCY [None]
  - ANOREXIA [None]
  - BLOOD CREATININE INCREASED [None]
  - BLOOD UREA INCREASED [None]
  - DEHYDRATION [None]
  - HYPONATRAEMIA [None]
  - HYPOTENSION [None]
  - NAUSEA [None]
  - VOMITING [None]
